FAERS Safety Report 10453454 (Version 1)
Quarter: 2014Q3

REPORT INFORMATION
  Report Type: Spontaneous
  Country: US (occurrence: US)
  Receive Date: 20140915
  Receipt Date: 20140915
  Transmission Date: 20150326
  Serious: Yes (Hospitalization)
  Sender: FDA-Public Use
  Company Number: US-UCBSA-2014011514

PATIENT
  Age: 6 Year
  Sex: Male
  Weight: 18 kg

DRUGS (1)
  1. KEPPRA [Suspect]
     Active Substance: LEVETIRACETAM
     Indication: OFF LABEL USE
     Dosage: 99223.3 MG, ONE TIME DOSE;100MG/ML

REACTIONS (6)
  - Accidental overdose [Unknown]
  - Areflexia [Unknown]
  - Incorrect route of drug administration [Unknown]
  - Off label use [Unknown]
  - Lethargy [Recovering/Resolving]
  - Hypotension [Unknown]
